FAERS Safety Report 20297433 (Version 2)
Quarter: 2022Q1

REPORT INFORMATION
  Report Type: Spontaneous
  Country: DE (occurrence: DE)
  Receive Date: 20220105
  Receipt Date: 20220204
  Transmission Date: 20220424
  Serious: Yes (Hospitalization)
  Sender: FDA-Public Use
  Company Number: DE-HETERO-HET2021DE02339

PATIENT

DRUGS (6)
  1. LEVETIRACETAM [Suspect]
     Active Substance: LEVETIRACETAM
     Indication: Hypoperfusion
     Dosage: 500 MG, B.I.D.(1-0-1)
     Route: 065
  2. CLOPIDOGREL BESILATE [Suspect]
     Active Substance: CLOPIDOGREL BESILATE
     Indication: Hypoperfusion
     Dosage: 75 MG, Q.A.M. AT BREAKFAST
     Route: 048
     Dates: start: 202106, end: 20210912
  3. CLOPIDOGREL BESILATE [Suspect]
     Active Substance: CLOPIDOGREL BESILATE
     Indication: Cardiovascular event prophylaxis
     Dosage: 75 MG, QD (TRIED AGAIN EVERY MORNING AT BREAKFAST)
     Route: 048
     Dates: start: 20210929
  4. ATORVASTATIN [Concomitant]
     Active Substance: ATORVASTATIN
     Indication: Cerebral ischaemia
     Dosage: UNK
     Route: 065
     Dates: start: 202106
  5. PSYLLIUM                           /01328801/ [Concomitant]
     Indication: Product used for unknown indication
     Dosage: UNK
     Route: 065
  6. PROSTAGUTT [Concomitant]
     Indication: Product used for unknown indication
     Dosage: UNK
     Route: 065

REACTIONS (8)
  - Aphasia [Recovered/Resolved]
  - Blood urine present [Recovered/Resolved]
  - Wound haemorrhage [Recovered/Resolved]
  - Impaired driving ability [Unknown]
  - Contusion [Unknown]
  - Therapy cessation [Unknown]
  - Prostatic adenoma [Recovered/Resolved]
  - Product use in unapproved indication [Unknown]

NARRATIVE: CASE EVENT DATE: 20210929
